FAERS Safety Report 6386255-5 (Version None)
Quarter: 2009Q4

REPORT INFORMATION
  Report Type: 
  Country: None (occurrence: None)
  Receive Date: 20091002
  Receipt Date: 20090930
  Transmission Date: 20100525
  Serious: Yes (Death)
  Sender: FDA-Public Use
  Company Number: JP-BAYER-200913640BYL

PATIENT
  Sex: Female

DRUGS (5)
  1. NEXAVAR [Suspect]
     Indication: RENAL CELL CARCINOMA STAGE IV
     Dosage: UNIT DOSE: 200 MG
     Route: 048
     Dates: start: 20080728
  2. CALTAN [Concomitant]
     Route: 048
  3. ACECOL [Concomitant]
     Route: 048
  4. DIOVAN [Concomitant]
     Route: 048
  5. ARTIST [Concomitant]
     Route: 048

REACTIONS (3)
  - DEATH [None]
  - HYPERTENSION [None]
  - HYPOPHOSPHATAEMIA [None]
